FAERS Safety Report 13362141 (Version 1)
Quarter: 2017Q1

REPORT INFORMATION
  Report Type: Spontaneous
  Country: US (occurrence: US)
  Receive Date: 20170321
  Receipt Date: 20170321
  Transmission Date: 20170429
  Serious: No
  Sender: FDA-Public Use
  Company Number: None

PATIENT
  Age: 61 Year
  Sex: Female

DRUGS (1)
  1. TALTZ [Suspect]
     Active Substance: IXEKIZUMAB
     Indication: PSORIASIS
     Dosage: 80MG 160MG DAY 0, THEN 80MG EVERY 2 WEEKS FOR 6 DOSES SUBQ
     Route: 058
     Dates: start: 20170217

REACTIONS (1)
  - Rash [None]

NARRATIVE: CASE EVENT DATE: 20170319
